FAERS Safety Report 5961657-7 (Version None)
Quarter: 2008Q4

REPORT INFORMATION
  Report Type: 
  Country: None (occurrence: None)
  Receive Date: 20081121
  Receipt Date: 20081113
  Transmission Date: 20090506
  Serious: Yes (Hospitalization, Disabling)
  Sender: FDA-Public Use
  Company Number: JP-AVENTIS-200813533JP

PATIENT
  Age: 79 Year
  Sex: Female

DRUGS (2)
  1. AMARYL [Suspect]
     Indication: DIABETES MELLITUS
  2. METFORMIN HCL [Concomitant]
     Dosage: DOSE: 250 MG

REACTIONS (2)
  - DEPRESSED LEVEL OF CONSCIOUSNESS [None]
  - HYPOGLYCAEMIC ENCEPHALOPATHY [None]
